FAERS Safety Report 7602871-4 (Version None)
Quarter: 2011Q2

REPORT INFORMATION
  Report Type: 
  Country: None (occurrence: None)
  Receive Date: 20110630
  Receipt Date: 20110620
  Transmission Date: 20111010
  Serious: Yes (Other)
  Sender: FDA-Public Use
  Company Number: OSCN-NO-1106S-0155

PATIENT
  Age: 67 Year
  Sex: Male

DRUGS (12)
  1. PRAMIPEXOLE DIHYDROCHLORIDE [Concomitant]
  2. DARIFENACIN (EMSELEX) (DARIFENACIN) [Concomitant]
  3. SINEMET DEPOT (LEVODOPA) [Concomitant]
  4. COZAAR COMP (HYZAAR) [Concomitant]
  5. OMNISCAN [Suspect]
     Indication: TRANSIENT ISCHAEMIC ATTACK
     Dosage: 20 ML, SINGLE DOSE, REPORTED: PARENTERAL
     Route: 051
     Dates: start: 20110405, end: 20110405
  6. LANSOPRAZOLE [Concomitant]
  7. VENOFER [Concomitant]
  8. CYANOCOBALAMIN [Concomitant]
  9. METOPROLOL TARTRATE [Concomitant]
  10. SIMVASTATIN [Concomitant]
  11. ASASANTIN RETARD (ACETYLSALICYLIC ACID) [Concomitant]
  12. CLONAZEPAM [Concomitant]

REACTIONS (1)
  - HEMIANOPIA HETERONYMOUS [None]
